FAERS Safety Report 6856850-5 (Version None)
Quarter: 2010Q3

REPORT INFORMATION
  Report Type: 
  Country: None (occurrence: None)
  Receive Date: 20100719
  Receipt Date: 20100712
  Transmission Date: 20110219
  Serious: Yes (Hospitalization, Other)
  Sender: FDA-Public Use
  Company Number: BR-BRISTOL-MYERS SQUIBB COMPANY-15187339

PATIENT
  Age: 14 Year
  Sex: Male

DRUGS (5)
  1. AMPHOTERICIN B [Suspect]
     Indication: PARACOCCIDIOIDES INFECTION
  2. COTRIM [Suspect]
     Indication: PARACOCCIDIOIDES INFECTION
  3. ITRACONAZOLE [Suspect]
     Indication: PARACOCCIDIOIDES INFECTION
     Dosage: INCREASED TO 300 MG/D
  4. SULFADIAZINE [Suspect]
     Indication: PARACOCCIDIOIDES INFECTION
  5. LIPOSOMAL AMPHOTERICIN B [Suspect]
     Indication: PARACOCCIDIOIDES INFECTION

REACTIONS (2)
  - NEPHROPATHY TOXIC [None]
  - PARADOXICAL DRUG REACTION [None]
